FAERS Safety Report 7294914-5 (Version None)
Quarter: 2011Q1

REPORT INFORMATION
  Report Type: 
  Country: None (occurrence: None)
  Receive Date: 20110216
  Receipt Date: 20110207
  Transmission Date: 20110831
  Serious: Yes (Hospitalization, Other)
  Sender: FDA-Public Use
  Company Number: US-PURDUE-USA-2011-0063649

PATIENT
  Age: 88 Year
  Sex: Male

DRUGS (1)
  1. BETADINE SURGICAL SCRUB 7.5% [Suspect]
     Indication: PREOPERATIVE CARE
     Dosage: UNK
     Route: 061
     Dates: start: 20110201, end: 20110202

REACTIONS (1)
  - SYNCOPE [None]
